FAERS Safety Report 12429346 (Version 2)
Quarter: 2020Q3

REPORT INFORMATION
  Report Type: Spontaneous
  Country: SE (occurrence: SE)
  Receive Date: 20160602
  Receipt Date: 20200925
  Transmission Date: 20201102
  Serious: Yes (Hospitalization)
  Sender: FDA-Public Use
  Company Number: SE-JNJFOC-20160529245

PATIENT
  Age: 58 Year
  Sex: Female

DRUGS (13)
  1. BRUFEN [Concomitant]
     Active Substance: IBUPROFEN
  2. PREDNISOLONE. [Concomitant]
     Active Substance: PREDNISOLONE
     Route: 065
  3. CELLCEPT [Concomitant]
     Active Substance: MYCOPHENOLATE MOFETIL\MYCOPHENOLATE MOFETIL HYDROCHLORIDE
     Route: 065
  4. KALCIPOS?D [Concomitant]
     Active Substance: CALCIUM CARBONATE\CHOLECALCIFEROL
  5. LANZO [Concomitant]
     Active Substance: LANSOPRAZOLE
     Route: 065
  6. IMIGRAN [Concomitant]
     Active Substance: SUMATRIPTAN SUCCINATE
  7. STILNOCT [Concomitant]
     Active Substance: ZOLPIDEM TARTRATE
     Route: 065
  8. XARELTO [Suspect]
     Active Substance: RIVAROXABAN
     Indication: PRODUCT USED FOR UNKNOWN INDICATION
     Route: 048
     Dates: start: 20130613, end: 20131001
  9. PREDNISOLONE. [Concomitant]
     Active Substance: PREDNISOLONE
     Route: 065
  10. ALENATO [Concomitant]
     Route: 065
  11. STILNOCT [Concomitant]
     Active Substance: ZOLPIDEM TARTRATE
     Route: 065
  12. LANZO [Concomitant]
     Active Substance: LANSOPRAZOLE
     Route: 065
  13. KALCIPOS?D [Concomitant]
     Active Substance: CALCIUM CARBONATE\CHOLECALCIFEROL
     Route: 065

REACTIONS (4)
  - Microembolism [Not Recovered/Not Resolved]
  - Antiphospholipid syndrome [Not Recovered/Not Resolved]
  - Thrombosis [Not Recovered/Not Resolved]
  - Condition aggravated [Not Recovered/Not Resolved]

NARRATIVE: CASE EVENT DATE: 20130923
